FAERS Safety Report 7376001-0 (Version None)
Quarter: 2011Q1

REPORT INFORMATION
  Report Type: 
  Country: None (occurrence: None)
  Receive Date: 20110325
  Receipt Date: 20110321
  Transmission Date: 20110831
  Serious: Yes (Death, Life-Threatening, Hospitalization)
  Sender: FDA-Public Use
  Company Number: PHHO2011FR01386

PATIENT
  Sex: Male
  Weight: 68 kg

DRUGS (27)
  1. ALUMINUM HYDROXIDE AND MAGNESIUM TRISILICATE [Concomitant]
  2. CELLCEPT [Suspect]
     Indication: RENAL TRANSPLANT
     Dosage: 2 G, PER DAY
     Route: 048
     Dates: start: 20110115, end: 20110209
  3. BACTRIM [Suspect]
     Dosage: 400 MG, PER DAY
     Route: 048
     Dates: start: 20110124, end: 20110201
  4. SOLU-MEDROL [Concomitant]
     Indication: RENAL TRANSPLANT
     Dosage: 20 MG/ DAY
     Dates: start: 20110115, end: 20110115
  5. LASIX [Concomitant]
  6. ESOMEPRAZOLE [Concomitant]
  7. CALCIDIA [Concomitant]
  8. AMLODIPINE BESYLATE [Concomitant]
  9. ECONAZOLE NITRATE [Concomitant]
  10. NEORAL [Suspect]
     Indication: RENAL TRANSPLANT
     Dosage: 400 MG, PER DAY
     Route: 048
     Dates: start: 20110117, end: 20110201
  11. EPREX [Concomitant]
  12. INSULATARD [Concomitant]
  13. NORSET [Concomitant]
  14. CERTICAN [Suspect]
     Indication: RENAL TRANSPLANT
     Dosage: 3 MG, PER DAY
     Route: 048
     Dates: start: 20110202, end: 20110209
  15. CORTANCYL [Suspect]
     Indication: RENAL TRANSPLANT
     Dosage: 40 MG, PER DAY
     Route: 048
     Dates: start: 20110116
  16. ROVALCYTE [Suspect]
     Dosage: 250 MG, 9QD
     Route: 048
     Dates: start: 20110129, end: 20110201
  17. ADANCOR [Concomitant]
  18. NITRODERM [Concomitant]
  19. NEORAL [Suspect]
     Dosage: 400 MG, PER DAY
     Route: 048
     Dates: start: 20110210
  20. NEORAL [Suspect]
     Dosage: 100 MG, QD
     Route: 048
     Dates: start: 20110227
  21. ZANTAC [Suspect]
     Dosage: 150 MG, PER DAY
     Route: 048
     Dates: start: 20110202
  22. SODIUM BICARBONATE [Concomitant]
  23. IMODIUM [Concomitant]
  24. POTASSIUM CHLORIDE [Concomitant]
  25. CELLCEPT [Suspect]
     Dosage: 1 G, PER DAY
     Route: 048
     Dates: start: 20110301, end: 20110308
  26. ESOMEPRAZOLE MAGNESIUM [Suspect]
     Dosage: 40 MG, PER DAY
     Route: 048
     Dates: start: 20110116, end: 20110201
  27. SIMULECT [Concomitant]
     Indication: RENAL TRANSPLANT
     Dosage: 500 MG/ DAY
     Dates: start: 20110115, end: 20110115

REACTIONS (14)
  - THROMBOCYTOPENIA [None]
  - ESCHERICHIA SEPSIS [None]
  - COMPLICATIONS OF TRANSPLANTED KIDNEY [None]
  - RED BLOOD CELL COUNT DECREASED [None]
  - PNEUMONIA ESCHERICHIA [None]
  - LEUKOPENIA [None]
  - CYTOMEGALOVIRUS INFECTION [None]
  - ANASTOMOTIC HAEMORRHAGE [None]
  - NUTRITIONAL CONDITION ABNORMAL [None]
  - RENAL TUBULAR NECROSIS [None]
  - WOUND DEHISCENCE [None]
  - RENAL IMPAIRMENT [None]
  - DIARRHOEA [None]
  - RENAL VESSEL DISORDER [None]
